FAERS Safety Report 12750134 (Version 1)
Quarter: 2016Q3

REPORT INFORMATION
  Report Type: Spontaneous
  Country: US (occurrence: US)
  Receive Date: 20160915
  Receipt Date: 20160915
  Transmission Date: 20161109
  Serious: No
  Sender: FDA-Public Use
  Company Number: US-ASTELLAS-2015US048861

PATIENT
  Sex: Male

DRUGS (2)
  1. XTANDI [Suspect]
     Active Substance: ENZALUTAMIDE
     Indication: HORMONE-REFRACTORY PROSTATE CANCER
     Route: 048
     Dates: start: 201508, end: 20160429
  2. TAXOTERE [Concomitant]
     Active Substance: DOCETAXEL
     Indication: PRODUCT USED FOR UNKNOWN INDICATION
     Dosage: UNK UNK, 4 CYCLES
     Route: 065

REACTIONS (6)
  - Fatigue [Not Recovered/Not Resolved]
  - Tooth extraction [Recovering/Resolving]
  - Prostatic specific antigen increased [Unknown]
  - Asthenia [Recovering/Resolving]
  - Weight decreased [Unknown]
  - Hot flush [Recovering/Resolving]
